FAERS Safety Report 7220534-4 (Version None)
Quarter: 2011Q1

REPORT INFORMATION
  Report Type: 
  Country: None (occurrence: None)
  Receive Date: 20110111
  Receipt Date: 20110103
  Transmission Date: 20110831
  Serious: Yes (Hospitalization)
  Sender: FDA-Public Use
  Company Number: FR-ASTRAZENECA-2011SE00914

PATIENT
  Age: 45 Day
  Sex: Female
  Weight: 3.4 kg

DRUGS (1)
  1. EMLA [Suspect]
     Indication: PAIN
     Route: 061
     Dates: start: 20101012, end: 20101012

REACTIONS (1)
  - MALAISE [None]
